FAERS Safety Report 11457199 (Version 1)
Quarter: 2015Q3

REPORT INFORMATION
  Report Type: Spontaneous
  Country: US (occurrence: None)
  Receive Date: 20150903
  Receipt Date: 20150903
  Transmission Date: 20151125
  Serious: Yes (Other)
  Sender: FDA-Public Use
  Company Number: None

PATIENT
  Age: 58 Year
  Sex: Female
  Weight: 72.58 kg

DRUGS (5)
  1. PICATO [Suspect]
     Active Substance: INGENOL MEBUTATE
     Indication: ACTINIC KERATOSIS
     Dosage: APPLY SMALL AMOUNT
     Route: 061
     Dates: start: 20150731, end: 20150801
  2. MOBIC [Concomitant]
     Active Substance: MELOXICAM
  3. KEPPRA [Concomitant]
     Active Substance: LEVETIRACETAM
  4. TOPAMAX [Concomitant]
     Active Substance: TOPIRAMATE
  5. FLEXERIL [Concomitant]
     Active Substance: CYCLOBENZAPRINE HYDROCHLORIDE

REACTIONS (1)
  - Eye burns [None]

NARRATIVE: CASE EVENT DATE: 20150802
